FAERS Safety Report 23409007 (Version 1)
Quarter: 2024Q1

REPORT INFORMATION
  Report Type: Spontaneous
  Country: US (occurrence: None)
  Receive Date: 20240115
  Receipt Date: 20240115
  Transmission Date: 20240410
  Serious: Yes (Death)
  Sender: FDA-Public Use
  Company Number: None

PATIENT
  Age: 69 Year
  Sex: Male
  Weight: 63.45 kg

DRUGS (4)
  1. KRYSTEXXA [Suspect]
     Active Substance: PEGLOTICASE
     Indication: Gout
     Dosage: FREQUENCY : EVERY OTHER WEEK;?
     Route: 042
  2. DIPHENHYDRAMINE [Concomitant]
  3. ACETAMINOPHEN [Concomitant]
  4. METHYLPREDNISOLONE [Concomitant]

REACTIONS (6)
  - Headache [None]
  - Blood pressure increased [None]
  - Infusion related reaction [None]
  - Respiratory arrest [None]
  - Pulse absent [None]
  - Cyanosis [None]

NARRATIVE: CASE EVENT DATE: 20240111
